FAERS Safety Report 5030574-1 (Version None)
Quarter: 2006Q2

REPORT INFORMATION
  Report Type: 
  Country: None (occurrence: None)
  Receive Date: 20060615
  Receipt Date: 20060531
  Transmission Date: 20061013
  Serious: Yes (Death)
  Sender: FDA-Public Use
  Company Number: SUS1-2006-00380

PATIENT
  Age: 13 Year
  Sex: Male

DRUGS (4)
  1. ADDERALL 10 [Suspect]
     Indication: ATTENTION DEFICIT/HYPERACTIVITY DISORDER
     Dosage: 0.2 MG 3 TABLETS AT BEDTIME
     Dates: start: 20040101, end: 20060301
  2. CLONIDINE [Suspect]
     Indication: INSOMNIA
     Dosage: 0.2 MG 3 TABLETS AT BEDTIME
     Dates: start: 20040101, end: 20060325
  3. AMOXICILLIN [Concomitant]
  4. PROZAC [Suspect]
     Indication: DEPRESSION
     Dosage: 20 MG 1X/DAY QD
     Dates: start: 20040101, end: 20060301

REACTIONS (5)
  - FEELING ABNORMAL [None]
  - MYOCARDITIS BACTERIAL [None]
  - PHARYNGITIS STREPTOCOCCAL [None]
  - PRESCRIBED OVERDOSE [None]
  - SUDDEN DEATH [None]
